FAERS Safety Report 12409216 (Version 3)
Quarter: 2016Q3

REPORT INFORMATION
  Report Type: Spontaneous
  Country: IT (occurrence: IT)
  Receive Date: 20160526
  Receipt Date: 20160701
  Transmission Date: 20161109
  Serious: Yes (Death, Hospitalization, Other)
  Sender: FDA-Public Use
  Company Number: IT-KADMON PHARMACEUTICALS, LLC-KAD201605-001938

PATIENT
  Age: 57 Year
  Sex: Male
  Weight: 73 kg

DRUGS (6)
  1. TRUVADA [Concomitant]
     Active Substance: EMTRICITABINE\TENOFOVIR DISOPROXIL FUMARATE
     Indication: HIV INFECTION
     Dosage: COATED TABLET
     Route: 048
     Dates: start: 20130430
  2. HARVONI [Suspect]
     Active Substance: LEDIPASVIR\SOFOSBUVIR
     Indication: HEPATITIS C
     Dosage: COATED TABLET
     Route: 048
     Dates: start: 20160405
  3. DARUNAVIR/RITONAVIR [Concomitant]
     Active Substance: DARUNAVIR\RITONAVIR
     Indication: ANTIRETROVIRAL THERAPY
     Dates: start: 201304
  4. RIBAVIRIN. [Suspect]
     Active Substance: RIBAVIRIN
     Indication: HEPATITIS C
     Route: 048
     Dates: start: 20160405
  5. PREZISTA 400 MG [Concomitant]
     Indication: HIV INFECTION
     Dosage: COATED TABLET
     Route: 048
     Dates: start: 20130430
  6. VITAMIN D [Concomitant]
     Active Substance: CHOLECALCIFEROL

REACTIONS (8)
  - Cardiac arrest [Recovered/Resolved]
  - Jaundice [Unknown]
  - Disturbance in attention [Unknown]
  - Gastric varices haemorrhage [Fatal]
  - Haematemesis [Unknown]
  - Hepatic cirrhosis [Fatal]
  - Pyrexia [Unknown]
  - Ascites [Unknown]

NARRATIVE: CASE EVENT DATE: 20160415
